FAERS Safety Report 10014461 (Version 1)
Quarter: 2014Q1

REPORT INFORMATION
  Report Type: Spontaneous
  Country: NL (occurrence: NL)
  Receive Date: 20140317
  Receipt Date: 20140317
  Transmission Date: 20141002
  Serious: Yes (Congenital Anomaly)
  Sender: FDA-Public Use
  Company Number: NL-TEVA-466513ISR

PATIENT
  Age: 0 None
  Sex: Male

DRUGS (2)
  1. VITAMINE C PCH TABLET 500MG [Suspect]
     Indication: ORAL HERPES
     Dosage: 1000 MILLIGRAM DAILY; TWICE DAILY ONE PIECE
     Route: 064
     Dates: start: 2012
  2. AMITRIPTYLINE DRAGEE 25MG [Suspect]
     Indication: DEPRESSION
     Dosage: 50 MILLIGRAM DAILY; ONCE DAILY ONE PIECE
     Route: 064
     Dates: start: 2004

REACTIONS (2)
  - Cleft palate [Not Recovered/Not Resolved]
  - Placental transfusion syndrome [Recovered/Resolved]
